FAERS Safety Report 9686036 (Version 1)
Quarter: 2013Q4

REPORT INFORMATION
  Report Type: Spontaneous
  Country: CH (occurrence: None)
  Receive Date: 20131108
  Receipt Date: 20131108
  Transmission Date: 20140711
  Serious: Yes (Hospitalization)
  Sender: FDA-Public Use
  Company Number: 2013CH009601

PATIENT
  Age: 71 Year
  Sex: Female

DRUGS (11)
  1. ALOXI [Suspect]
     Indication: NAUSEA
     Route: 040
     Dates: start: 20130826, end: 20130902
  2. NAVELBINE [Suspect]
     Dosage: 50 MG, QWK, IV DRIP
     Route: 041
     Dates: start: 20130826, end: 20130902
  3. CISPLATIN [Suspect]
     Dosage: 130 MG, SINGLE, IV DRIP
     Route: 041
     Dates: start: 20130826, end: 20130826
  4. TRAMAL (TRAMADOL HYDROCHLORIDE) [Concomitant]
  5. CO-EPRIL (ENALAPRIL MALEATE, HYDROCHLOTHIAZIDE) [Concomitant]
  6. LIPANTHYL (FENOFIBRATE) [Concomitant]
  7. NEXIUM I.V. [Concomitant]
  8. INDERAL (PROPRANOLOL HYDROCHLORIDE) [Concomitant]
  9. SOLUMEDROL (METHYLPREDNISOLONE SODIUM SUCCINATE) [Concomitant]
  10. APREPITANT (APREPITANT) [Concomitant]
  11. DEXAMETHASONE (DEXAMETHASONE) [Concomitant]

REACTIONS (1)
  - Cardiogenic shock [None]
